FAERS Safety Report 13021613 (Version 1)
Quarter: 2016Q4

REPORT INFORMATION
  Report Type: Spontaneous
  Country: US (occurrence: US)
  Receive Date: 20161213
  Receipt Date: 20161213
  Transmission Date: 20170207
  Serious: No
  Sender: FDA-Public Use
  Company Number: US-BAYER-2016-234133

PATIENT
  Age: 75 Year
  Sex: Male
  Weight: 170 kg

DRUGS (1)
  1. MIRALAX [Suspect]
     Active Substance: POLYETHYLENE GLYCOL 3350
     Indication: IRRITABLE BOWEL SYNDROME
     Dosage: 1 DF, UNK (DROP, USED IT FOR YEARS)
     Route: 048
     Dates: start: 2008

REACTIONS (1)
  - Product use issue [Unknown]
